FAERS Safety Report 5563000-4 (Version None)
Quarter: 2007Q4

REPORT INFORMATION
  Report Type: 
  Country: None (occurrence: None)
  Receive Date: 20071217
  Receipt Date: 20071205
  Transmission Date: 20080405
  Serious: Yes (Other)
  Sender: FDA-Public Use
  Company Number: FR-ROCHE-535724

PATIENT
  Age: 20 Month
  Sex: Male
  Weight: 12 kg

DRUGS (5)
  1. VALIUM [Suspect]
     Indication: MENINGITIS
     Route: 048
     Dates: start: 20071023, end: 20071106
  2. VANCOMYCIN [Suspect]
     Indication: DRUG USE FOR UNKNOWN INDICATION
     Dosage: DRUG REPORTED: VANCOMYCINE MERCK
     Route: 042
     Dates: start: 20071023, end: 20071030
  3. CLAFORAN [Suspect]
     Indication: DRUG USE FOR UNKNOWN INDICATION
     Dosage: FORM REPORTED: INJECTABLE SOLUTION
     Route: 042
     Dates: start: 20071023, end: 20071030
  4. PERFALGAN [Suspect]
     Indication: DRUG USE FOR UNKNOWN INDICATION
     Dosage: FORM: INJECTABLE SOLUTION
     Route: 042
     Dates: start: 20071023, end: 20071106
  5. GARDENAL [Suspect]
     Indication: DRUG USE FOR UNKNOWN INDICATION
     Dosage: FORM: INJECTABLE SOLUTION
     Route: 042

REACTIONS (5)
  - DERMATITIS BULLOUS [None]
  - OEDEMA GENITAL [None]
  - ORAL DISORDER [None]
  - RASH MACULAR [None]
  - RASH PAPULAR [None]
